FAERS Safety Report 23322717 (Version 1)
Quarter: 2023Q4

REPORT INFORMATION
  Report Type: Spontaneous
  Country: US (occurrence: US)
  Receive Date: 20231220
  Receipt Date: 20231220
  Transmission Date: 20240109
  Serious: Yes (Death, Other)
  Sender: FDA-Public Use
  Company Number: US-GILEAD-2023-0655644

PATIENT
  Age: 58 Year
  Sex: Male
  Weight: 89.8 kg

DRUGS (1)
  1. YESCARTA [Suspect]
     Active Substance: AXICABTAGENE CILOLEUCEL
     Indication: Diffuse large B-cell lymphoma refractory
     Dosage: UNK
     Route: 042
     Dates: start: 20231031, end: 20231031

REACTIONS (11)
  - Death [Fatal]
  - Metastases to meninges [Unknown]
  - Graft versus host disease in liver [Unknown]
  - Cerebrovascular accident [Recovered/Resolved]
  - Embolic stroke [Unknown]
  - Enterocolitis viral [Unknown]
  - Febrile neutropenia [Unknown]
  - Atrial fibrillation [Unknown]
  - Neurotoxicity [Unknown]
  - Cytokine release syndrome [Recovered/Resolved]
  - Mental status changes [Unknown]

NARRATIVE: CASE EVENT DATE: 20231125
